FAERS Safety Report 6092805-9 (Version None)
Quarter: 2009Q1

REPORT INFORMATION
  Report Type: 
  Country: None (occurrence: None)
  Receive Date: 20090225
  Receipt Date: 20090220
  Transmission Date: 20090719
  Serious: Yes (Death, Hospitalization)
  Sender: FDA-Public Use
  Company Number: TW-ROCHE-582976

PATIENT
  Sex: Female
  Weight: 44.7 kg

DRUGS (18)
  1. CAPECITABINE [Suspect]
     Indication: GASTRIC CANCER
     Dosage: FREQUENCY REPORTED AS D1-14Q3W.
     Route: 048
     Dates: start: 20080529
  2. CAPECITABINE [Suspect]
     Dosage: FRQUENCY: DAY1-DAY14 Q3W, ROUTE: BID PO
     Route: 048
     Dates: end: 20080903
  3. BLINDED BEVACIZUMAB [Suspect]
     Indication: GASTRIC CANCER
     Dosage: FREQUENCY REPORTED : D1Q3W. DOSAGE FORM: INFUSION.
     Route: 042
     Dates: start: 20080529, end: 20080903
  4. CISPLATIN [Suspect]
     Indication: GASTRIC CANCER
     Dosage: FREQUENCY REPORTED AS D1Q3W AND DOSAGE FORM REPORTED AS INFUSION.
     Route: 042
     Dates: start: 20080529, end: 20080903
  5. BUSCOPAN [Concomitant]
     Dates: start: 20080823, end: 20080823
  6. CEFMETAZON [Concomitant]
     Dates: start: 20080823, end: 20080823
  7. DIPHENHYDRAMINE HCL [Concomitant]
     Dosage: DRUG NAME: DYPHENHYDRAMIN HCL
     Dates: start: 20080823, end: 20080824
  8. FILGRASTIM [Concomitant]
     Dates: start: 20080823, end: 20080826
  9. FILGRASTIM [Concomitant]
     Dates: start: 20080427, end: 20080903
  10. SOLU-CORTEF [Concomitant]
     Dates: start: 20080823, end: 20080824
  11. LOSEC [Concomitant]
     Dates: start: 20080823, end: 20080825
  12. LOSEC [Concomitant]
     Dates: start: 20080829, end: 20080903
  13. RHEOMACRODEX [Concomitant]
     Dates: start: 20080823, end: 20080823
  14. FRESH FROZEN PLASMA [Concomitant]
     Dates: start: 20080823, end: 20080823
  15. FRESH FROZEN PLASMA [Concomitant]
     Dates: start: 20080827, end: 20080827
  16. FRESH FROZEN PLASMA [Concomitant]
     Dates: start: 20080901, end: 20080902
  17. FRESH FROZEN PLASMA [Concomitant]
     Dates: start: 20080828, end: 20080828
  18. CRYOPRECIPITATED ANTIHEMOPHILIC FACTOR [Concomitant]
     Dosage: DRUG REPORTED AS TRANSFUSION SRYOPRECIPITATED AHF
     Dates: start: 20080823, end: 20080823

REACTIONS (3)
  - PANCYTOPENIA [None]
  - SEPTIC SHOCK [None]
  - UPPER GASTROINTESTINAL HAEMORRHAGE [None]
